FAERS Safety Report 5729185-1 (Version None)
Quarter: 2008Q2

REPORT INFORMATION
  Report Type: 
  Country: None (occurrence: None)
  Receive Date: 20080506
  Receipt Date: 20080430
  Transmission Date: 20081010
  Serious: Yes (Hospitalization, Other)
  Sender: FDA-Public Use
  Company Number: US-BRISTOL-MYERS SQUIBB COMPANY-14159446

PATIENT
  Age: 60 Year
  Sex: Male
  Weight: 90 kg

DRUGS (3)
  1. CETUXIMAB [Suspect]
     Indication: NEOPLASM MALIGNANT
     Dosage: START DATE OF FIRST COURSE = 12MAR08;COURSES TODATE-6 LOADING DOSE 400 MG/M2;250 MG/M2 WEEKLY
     Dates: start: 20080414, end: 20080421
  2. CISPLATIN [Suspect]
     Indication: NEOPLASM MALIGNANT
     Dosage: START DATE OF FIRST COURSE = 12MAR08;COURSES TODATE-6 17-MAR-2008 100 MG/M2
     Dates: start: 20080407, end: 20080407
  3. RADIATION THERAPY [Suspect]
     Indication: NEOPLASM MALIGNANT
     Dosage: 1 DOSAGEFORM = 68 GY;NUMBER OF ELASPSED DAYS - 34
     Dates: start: 20080416, end: 20080416

REACTIONS (10)
  - CONSTIPATION [None]
  - DEHYDRATION [None]
  - DYSPHAGIA [None]
  - HYPOMAGNESAEMIA [None]
  - HYPOPHOSPHATAEMIA [None]
  - MUCOSAL INFLAMMATION [None]
  - NAUSEA [None]
  - ORAL PAIN [None]
  - STOMATITIS [None]
  - WEIGHT DECREASED [None]
